FAERS Safety Report 10193923 (Version 1)
Quarter: 2014Q2

REPORT INFORMATION
  Report Type: Spontaneous
  Country: US (occurrence: US)
  Receive Date: 20140524
  Receipt Date: 20140524
  Transmission Date: 20141212
  Serious: No
  Sender: FDA-Public Use
  Company Number: US-SANOFI-AVENTIS-2013SA050181

PATIENT
  Age: 44 Year
  Sex: 0

DRUGS (6)
  1. LANTUS SOLOSTAR [Suspect]
     Indication: TYPE 2 DIABETES MELLITUS
     Dosage: 80 TO 100 UNITS A.M.?160 UNITS P.M.
     Route: 058
  2. SOLOSTAR [Suspect]
     Indication: DEVICE THERAPY
  3. LANTUS [Suspect]
     Indication: TYPE 2 DIABETES MELLITUS
  4. ATORVASTATIN [Concomitant]
  5. VITAMIN D [Concomitant]
     Dosage: 1 TABLET EVERY WEEK
  6. CALCIUM CITRATE [Concomitant]

REACTIONS (1)
  - Glycosylated haemoglobin increased [Unknown]
